FAERS Safety Report 13665212 (Version 2)
Quarter: 2017Q4

REPORT INFORMATION
  Report Type: Report from Study
  Country: US (occurrence: US)
  Receive Date: 20170619
  Receipt Date: 20171121
  Transmission Date: 20180320
  Serious: Yes (Death)
  Sender: FDA-Public Use
  Company Number: US-PFIZER INC-2017263550

PATIENT

DRUGS (4)
  1. ETOPOSIDE. [Suspect]
     Active Substance: ETOPOSIDE
     Indication: SMALL CELL LUNG CANCER EXTENSIVE STAGE
     Dosage: 100 MG/M2, CYCLIC (ON DAY 1 OF EACH 21-DAY CYCLE)
     Route: 042
  2. GANITUMAB [Concomitant]
     Active Substance: GANITUMAB
     Indication: SMALL CELL LUNG CANCER
     Dosage: 18 MG/KG, EVERY 3 WEEKS (60-MINUTE INTRAVENOUS INFUSIONS ON DAY 2 OF CYCLE 1 AND ON DAY 1 OF)
     Route: 042
  3. CARBOPLATIN. [Suspect]
     Active Substance: CARBOPLATIN
     Indication: SMALL CELL LUNG CANCER EXTENSIVE STAGE
     Dosage: 5 MG/ML.MIN OVER 30 MINUTES (?10 MINUTES)
     Route: 042
  4. ETOPOSIDE. [Suspect]
     Active Substance: ETOPOSIDE
     Dosage: 100 MG/M2, CYCLIC (ON DAYS 2 AND 3 OF EACH 21-DAY CYCLE)
     Route: 042

REACTIONS (1)
  - Febrile neutropenia [Fatal]
